FAERS Safety Report 7361622-1 (Version None)
Quarter: 2011Q1

REPORT INFORMATION
  Report Type: 
  Country: None (occurrence: None)
  Receive Date: 20110318
  Receipt Date: 20110315
  Transmission Date: 20110831
  Serious: Yes (Other)
  Sender: FDA-Public Use
  Company Number: US-PFIZER INC-2011057163

PATIENT
  Sex: Female
  Weight: 53 kg

DRUGS (2)
  1. DROSPIRENONE AND ETHINYL ESTRADIOL [Concomitant]
     Indication: CONTRACEPTION
     Dosage: UNK
  2. SPIRONOLACTONE [Suspect]
     Indication: ACNE
     Dosage: 50 MG, 2X/DAY
     Route: 048
     Dates: end: 20100101

REACTIONS (9)
  - MUCOSAL DRYNESS [None]
  - LICHEN PLANUS [None]
  - GASTROINTESTINAL DISORDER [None]
  - MUCOSAL INFLAMMATION [None]
  - ALOPECIA [None]
  - SYSTEMIC LUPUS ERYTHEMATOSUS [None]
  - RHEUMATOID ARTHRITIS [None]
  - SINUSITIS [None]
  - ARTHRALGIA [None]
